FAERS Safety Report 5801748-4 (Version None)
Quarter: 2008Q3

REPORT INFORMATION
  Report Type: 
  Country: None (occurrence: None)
  Receive Date: 20080703
  Receipt Date: 20080703
  Transmission Date: 20090109
  Serious: Yes (Life-Threatening, Hospitalization)
  Sender: FDA-Public Use
  Company Number: None

PATIENT
  Sex: Female
  Weight: 91.6 kg

DRUGS (17)
  1. LISINOPRIL [Suspect]
     Indication: HYPERTENSION
     Dosage: PO
     Route: 048
     Dates: start: 20080630
  2. PREMARIN [Concomitant]
  3. LEVOTHYROXINE SODIUM [Concomitant]
  4. METHOCARBAMOL [Concomitant]
  5. MELOXICAM [Concomitant]
  6. ESOMEPRAZOLE MAGNESIUM [Concomitant]
  7. AMLODIPINE [Concomitant]
  8. DOCUSATE SODIUM [Concomitant]
  9. VITAMIN E [Concomitant]
  10. MULTIVITAMIN W/ MINERALS [Concomitant]
  11. ATORVASTATIN CALCIUM [Concomitant]
  12. TELMISARTAN [Concomitant]
  13. DARIFENACIN [Concomitant]
  14. PREGABALIN [Concomitant]
  15. TRAMADOL HCL [Concomitant]
  16. AMLODIPINE BESYLATE AND ATORVASTATIN CALIUM [Concomitant]
  17. NITROGLYCERIN [Concomitant]

REACTIONS (1)
  - SWOLLEN TONGUE [None]
